FAERS Safety Report 15506367 (Version 1)
Quarter: 2018Q4

REPORT INFORMATION
  Report Type: Spontaneous
  Country: AU (occurrence: AU)
  Receive Date: 20181016
  Receipt Date: 20181016
  Transmission Date: 20190205
  Serious: Yes (Death)
  Sender: FDA-Public Use
  Company Number: PHHY2018AU123371

PATIENT
  Age: 72 Day
  Sex: Male

DRUGS (2)
  1. OCTREOTIDE. [Suspect]
     Active Substance: OCTREOTIDE
     Dosage: 10 UG/KG, QH (MAXIMUM DOSE)
     Route: 042
  2. OCTREOTIDE. [Suspect]
     Active Substance: OCTREOTIDE
     Indication: CHYLOTHORAX
     Dosage: 1 UG/KG, QH (INITIAL DOSE)
     Route: 042

REACTIONS (3)
  - Blood thyroid stimulating hormone decreased [Fatal]
  - Thyroxine free decreased [Fatal]
  - Hyperglycaemia [Fatal]
